FAERS Safety Report 7086927-3 (Version None)
Quarter: 2010Q4

REPORT INFORMATION
  Report Type: 
  Country: None (occurrence: None)
  Receive Date: 20101106
  Receipt Date: 20101011
  Transmission Date: 20110411
  Serious: No
  Sender: FDA-Public Use
  Company Number: US-WYE-H17416710

PATIENT
  Sex: Female
  Weight: 99.88 kg

DRUGS (4)
  1. PREMARIN [Suspect]
     Indication: ATROPHIC VULVOVAGINITIS
     Route: 067
     Dates: start: 20080101
  2. PREMARIN [Suspect]
     Indication: VAGINAL PROLAPSE
     Route: 067
     Dates: start: 20080401
  3. LEVOTHYROXINE [Concomitant]
  4. DILTIAZEM [Concomitant]

REACTIONS (8)
  - BLADDER DISCOMFORT [None]
  - BURNING SENSATION [None]
  - CONDITION AGGRAVATED [None]
  - DRUG INEFFECTIVE [None]
  - PRODUCT QUALITY ISSUE [None]
  - PRODUCT SOLUBILITY ABNORMAL [None]
  - SENSATION OF PRESSURE [None]
  - WEIGHT DECREASED [None]
